FAERS Safety Report 23828936 (Version 1)
Quarter: 2024Q2

REPORT INFORMATION
  Report Type: Spontaneous
  Country: US (occurrence: US)
  Receive Date: 20240508
  Receipt Date: 20240508
  Transmission Date: 20240716
  Serious: No
  Sender: FDA-Public Use
  Company Number: US-UCBSA-2023018510

PATIENT
  Sex: Female

DRUGS (1)
  1. CIMZIA [Suspect]
     Active Substance: CERTOLIZUMAB PEGOL
     Indication: Rheumatoid arthritis
     Dosage: INJECT 200MG SUBCUTANEOUSLY ONE WEEK ON, ONE WEEK OFF, AS INDICATED
     Route: 058
     Dates: start: 20190320

REACTIONS (1)
  - Eye infection [Not Recovered/Not Resolved]
